FAERS Safety Report 6523457-9 (Version None)
Quarter: 2009Q4

REPORT INFORMATION
  Report Type: 
  Country: None (occurrence: None)
  Receive Date: 20091231
  Receipt Date: 20091222
  Transmission Date: 20100525
  Serious: Yes (Hospitalization)
  Sender: FDA-Public Use
  Company Number: JP-ASTRAZENECA-2009SE32373

PATIENT
  Sex: Female
  Weight: 103 kg

DRUGS (2)
  1. BLOPRESS PLUS [Suspect]
     Indication: HYPERTENSION
     Dosage: CANDESARTAN CILEXETIL/HYDROCHLOROTHIAZIDE
     Route: 048
     Dates: start: 20090317
  2. NON-STEROIDAL ANTIRHEUMATICS [Concomitant]
     Indication: OSTEOARTHRITIS
     Route: 065

REACTIONS (1)
  - CARDIAC FAILURE [None]
